FAERS Safety Report 24594302 (Version 1)
Quarter: 2024Q4

REPORT INFORMATION
  Report Type: Spontaneous
  Country: DE (occurrence: DE)
  Receive Date: 20241108
  Receipt Date: 20241108
  Transmission Date: 20250114
  Serious: Yes (Other)
  Sender: ABBVIE
  Company Number: DE-ABBVIE-5989158

PATIENT
  Sex: Female

DRUGS (5)
  1. VENCLEXTA [Suspect]
     Active Substance: VENETOCLAX
     Indication: Acute myeloid leukaemia
     Route: 048
  2. DECITABINE [Concomitant]
     Active Substance: DECITABINE
     Indication: Product used for unknown indication
     Route: 042
  3. VIDAZA [Concomitant]
     Active Substance: AZACITIDINE
     Indication: Product used for unknown indication
     Dosage: D1-5, D8,9
     Route: 058
  4. CYTARABINE [Concomitant]
     Active Substance: CYTARABINE
     Indication: Product used for unknown indication
  5. GLASDEGIB [Concomitant]
     Active Substance: GLASDEGIB
     Indication: Product used for unknown indication

REACTIONS (6)
  - Myelosuppression [Unknown]
  - Cytopenia [Unknown]
  - Off label use [Unknown]
  - Lymphocyte count increased [Unknown]
  - Myeloblast count increased [Unknown]
  - Megakaryocytes decreased [Unknown]

NARRATIVE: CASE EVENT DATE: 20220801
